FAERS Safety Report 7353650-7 (Version None)
Quarter: 2011Q1

REPORT INFORMATION
  Report Type: 
  Country: None (occurrence: None)
  Receive Date: 20110315
  Receipt Date: 20110314
  Transmission Date: 20110831
  Serious: Yes (Disabling, Congenital Anomaly)
  Sender: FDA-Public Use
  Company Number: FR-ABBOTT-10P-056-0639995-00

PATIENT
  Sex: Female

DRUGS (1)
  1. DEPAKENE [Suspect]
     Indication: DRUG EXPOSURE DURING PREGNANCY
     Route: 064

REACTIONS (7)
  - DRUG EXPOSURE DURING PREGNANCY [None]
  - MICROPHTHALMOS [None]
  - CAMPTODACTYLY CONGENITAL [None]
  - CONGENITAL HAND MALFORMATION [None]
  - ARACHNODACTYLY [None]
  - BLINDNESS CONGENITAL [None]
  - LIMB ASYMMETRY [None]
